FAERS Safety Report 7709519-9 (Version None)
Quarter: 2011Q3

REPORT INFORMATION
  Report Type: 
  Country: None (occurrence: None)
  Receive Date: 20110825
  Receipt Date: 20110821
  Transmission Date: 20111222
  Serious: Yes (Other)
  Sender: FDA-Public Use
  Company Number: CHPA2011BR11310

PATIENT
  Sex: Female

DRUGS (1)
  1. NICOTINE [Suspect]
     Dosage: UNK, UNK
     Route: 062

REACTIONS (7)
  - MALAISE [None]
  - OVERDOSE [None]
  - BLOOD PRESSURE DECREASED [None]
  - FEAR [None]
  - DRY MOUTH [None]
  - DYSGEUSIA [None]
  - TREATMENT NONCOMPLIANCE [None]
